FAERS Safety Report 7246338-4 (Version None)
Quarter: 2011Q1

REPORT INFORMATION
  Report Type: 
  Country: None (occurrence: None)
  Receive Date: 20110126
  Receipt Date: 20110114
  Transmission Date: 20110831
  Serious: Yes (Other)
  Sender: FDA-Public Use
  Company Number: US-CELGENEUS-163-21880-11011984

PATIENT
  Sex: Male

DRUGS (2)
  1. DECADRON [Suspect]
     Route: 065
  2. REVLIMID [Suspect]
     Indication: MULTIPLE MYELOMA
     Route: 048
     Dates: start: 20101119

REACTIONS (2)
  - FATIGUE [None]
  - TYPE 2 DIABETES MELLITUS [None]
